FAERS Safety Report 16054435 (Version 1)
Quarter: 2019Q1

REPORT INFORMATION
  Report Type: Report from Study
  Country: None (occurrence: ZA)
  Receive Date: 20190309
  Receipt Date: 20190309
  Transmission Date: 20190418
  Serious: Yes (Hospitalization)
  Sender: FDA-Public Use
  Company Number: ZA-ABBVIE-19K-143-2662894-00

PATIENT
  Sex: Female

DRUGS (1)
  1. HUMIRA [Suspect]
     Active Substance: ADALIMUMAB
     Indication: PSORIATIC ARTHROPATHY
     Route: 058
     Dates: start: 20190116

REACTIONS (7)
  - Tonsillitis [Unknown]
  - Papule [Not Recovered/Not Resolved]
  - Erythema [Not Recovered/Not Resolved]
  - Haemorrhage [Recovering/Resolving]
  - Pharyngitis bacterial [Not Recovered/Not Resolved]
  - Pain of skin [Not Recovered/Not Resolved]
  - Tonsillar cyst [Recovered/Resolved]

NARRATIVE: CASE EVENT DATE: 2019
